FAERS Safety Report 9690270 (Version 1)
Quarter: 2013Q4

REPORT INFORMATION
  Report Type: Spontaneous
  Country: US (occurrence: None)
  Receive Date: 20131114
  Receipt Date: 20131114
  Transmission Date: 20140711
  Serious: No
  Sender: FDA-Public Use
  Company Number: None

PATIENT
  Age: 70 Year
  Sex: Male
  Weight: 80.74 kg

DRUGS (1)
  1. LACTULOSE [Suspect]
     Indication: AMMONIA INCREASED
     Route: 048
     Dates: start: 20110810, end: 20131113

REACTIONS (2)
  - Abdominal pain upper [None]
  - Product colour issue [None]
